FAERS Safety Report 6461121-5 (Version None)
Quarter: 2009Q4

REPORT INFORMATION
  Report Type: 
  Country: None (occurrence: None)
  Receive Date: 20091130
  Receipt Date: 20091118
  Transmission Date: 20100525
  Serious: Yes (Other)
  Sender: FDA-Public Use
  Company Number: US-NOVOPROD-300940

PATIENT
  Sex: Female
  Weight: 81.633 kg

DRUGS (4)
  1. LEVEMIR [Suspect]
     Indication: INSULIN-REQUIRING TYPE 2 DIABETES MELLITUS
     Dosage: UNK
     Route: 058
     Dates: start: 20090601
  2. LIPITOR [Concomitant]
     Indication: BLOOD CHOLESTEROL INCREASED
  3. GLIMEPIRIDE [Concomitant]
  4. LEVOTHYROXINE [Concomitant]
     Indication: THYROID DISORDER
     Dosage: UNK

REACTIONS (2)
  - BLOOD GLUCOSE INCREASED [None]
  - BREAST CANCER [None]
